FAERS Safety Report 7714556-4 (Version None)
Quarter: 2011Q3

REPORT INFORMATION
  Report Type: 
  Country: None (occurrence: None)
  Receive Date: 20110822
  Receipt Date: 20110811
  Transmission Date: 20111222
  Serious: Yes (Other)
  Sender: FDA-Public Use
  Company Number: AUR-APL-2011-04458

PATIENT
  Age: 28 Year
  Sex: Male

DRUGS (7)
  1. ZIDOVUDINE [Suspect]
     Indication: HIV INFECTION
  2. ACYCLOVIR [Concomitant]
  3. CEFOTAXIME SODIUM [Concomitant]
  4. RITONAVIR [Suspect]
     Indication: HIV INFECTION
  5. DARUNAVIR HYDRATE [Suspect]
     Indication: HIV INFECTION
     Dosage: ORAL
     Route: 048
  6. CORTICOSTEROIDS (CORTICOSTEROIDS) [Suspect]
     Indication: PRODUCT USED FOR UNKNOWN INDICATION
  7. LAMIVUDINE [Suspect]
     Indication: HIV INFECTION

REACTIONS (2)
  - AMNESIA [None]
  - DRUG INEFFECTIVE [None]
